FAERS Safety Report 4615743-4 (Version None)
Quarter: 2005Q2

REPORT INFORMATION
  Report Type: 
  Country: None (occurrence: None)
  Receive Date: 20050310
  Receipt Date: 20041118
  Transmission Date: 20051028
  Serious: No
  Sender: FDA-Public Use
  Company Number: A03200403912

PATIENT
  Sex: Female

DRUGS (1)
  1. ELOXATIN [Suspect]
     Indication: NEOPLASM MALIGNANT
     Dosage: INTRAVENOUS NOS
     Route: 042

REACTIONS (1)
  - LARYNGOSPASM [None]
